FAERS Safety Report 9097651 (Version 1)
Quarter: 2013Q1

REPORT INFORMATION
  Report Type: Not Available
  Country: DK (occurrence: DK)
  Receive Date: 20130212
  Receipt Date: 20130212
  Transmission Date: 20140127
  Serious: Yes (Hospitalization, Disabling)
  Sender: FDA-Public Use
  Company Number: DK-NAPPMUNDI-GBR-2013-0013175

PATIENT
  Age: 86 Year
  Sex: Female

DRUGS (9)
  1. MORPHINE SULFATE CR TABLET [Suspect]
     Indication: PROCEDURAL PAIN
     Dosage: 5 MG, UNK
     Route: 048
     Dates: start: 20130115, end: 20130125
  2. AMLODIPIN ACTAVIS                  /00972404/ [Concomitant]
     Indication: HYPERTENSION
  3. PINEX                              /00020001/ [Concomitant]
     Indication: PAIN
  4. LOSARTAN POTASSIUM [Concomitant]
     Indication: HYPERTENSION
  5. ELTROXIN [Concomitant]
     Indication: HYPOTHYROIDISM
  6. SELOZOK [Concomitant]
     Indication: ATRIAL FIBRILLATION
  7. PRADAXA [Concomitant]
     Indication: ATRIAL FIBRILLATION
     Dosage: UNK
  8. CENTYL MED KALIUMKLORID [Concomitant]
     Indication: NAUSEA
  9. EMPERAL [Concomitant]
     Indication: NAUSEA

REACTIONS (6)
  - Dehydration [Recovering/Resolving]
  - Urinary tract infection [Unknown]
  - Hyponatraemia [Unknown]
  - Asthenia [Unknown]
  - Nausea [Unknown]
  - Vomiting [Unknown]
